FAERS Safety Report 8719506 (Version 4)
Quarter: 2013Q2

REPORT INFORMATION
  Report Type: Spontaneous
  Country: US (occurrence: US)
  Receive Date: 20120813
  Receipt Date: 20130530
  Transmission Date: 20140414
  Serious: Yes (Hospitalization)
  Sender: FDA-Public Use
  Company Number: US-US-EMD SERONO, INC.-7152652

PATIENT
  Age: 67 Year
  Sex: Female

DRUGS (1)
  1. REBIF [Suspect]
     Indication: MULTIPLE SCLEROSIS
     Route: 058
     Dates: start: 20100830

REACTIONS (11)
  - Spinal fracture [Recovering/Resolving]
  - Upper limb fracture [Recovering/Resolving]
  - Wound [Recovering/Resolving]
  - Contusion [Recovering/Resolving]
  - Road traffic accident [Recovered/Resolved]
  - Concussion [Unknown]
  - Haemorrhage [Unknown]
  - Osteopenia [Unknown]
  - Bone loss [Unknown]
  - Arthritis [Unknown]
  - Back pain [Unknown]
